FAERS Safety Report 7358232-9 (Version None)
Quarter: 2011Q1

REPORT INFORMATION
  Report Type: 
  Country: None (occurrence: None)
  Receive Date: 20110314
  Receipt Date: 20110314
  Transmission Date: 20110831
  Serious: No
  Sender: FDA-Public Use
  Company Number: None

PATIENT
  Age: 13 Year
  Sex: Female
  Weight: 45.3597 kg

DRUGS (1)
  1. LAMOTRIGINE [Suspect]
     Indication: MOOD ALTERED
     Dosage: 1 DAILY PO
     Route: 048
     Dates: start: 20110312, end: 20110313

REACTIONS (1)
  - RASH [None]
